FAERS Safety Report 21961575 (Version 1)
Quarter: 2023Q1

REPORT INFORMATION
  Report Type: Other
  Country: GB (occurrence: GB)
  Receive Date: 20230207
  Receipt Date: 20230207
  Transmission Date: 20230418
  Serious: Yes (Other)
  Sender: FDA-Public Use
  Company Number: GB-CELLTRION INC.-2022GB014325

PATIENT

DRUGS (1)
  1. RITUXIMAB [Suspect]
     Active Substance: RITUXIMAB
     Indication: Product used for unknown indication
     Dosage: AT 20:00, 2ND RATE CHANGE SWITCHED UP TO 107MLS/HR (FOLLOWING 77 AND 36MLS/HR RESPECTIVELY)

REACTIONS (4)
  - Oxygen saturation decreased [Recovered/Resolved]
  - Feeling abnormal [Unknown]
  - Blood pressure decreased [Unknown]
  - Headache [Unknown]
